FAERS Safety Report 21131263 (Version 2)
Quarter: 2022Q3

REPORT INFORMATION
  Report Type: Spontaneous
  Country: GB (occurrence: None)
  Receive Date: 20220726
  Receipt Date: 20220811
  Transmission Date: 20221026
  Serious: Yes (Other)
  Sender: FDA-Public Use
  Company Number: GB-MHRA-MED-202206141747549040-VZLSC

PATIENT
  Age: 39 Year
  Sex: Female
  Weight: 45 kg

DRUGS (3)
  1. AMOXICILLIN\CLAVULANIC ACID [Suspect]
     Active Substance: AMOXICILLIN\CLAVULANIC ACID
     Indication: Post procedural infection
     Dosage: 500/125MG THREE TIMES A DAY; ;
     Dates: start: 20220610, end: 20220612
  2. BOOTS IBUPROFEN [Concomitant]
     Indication: Analgesic therapy
     Dates: start: 20220602, end: 20220612
  3. COCODAMOL [Concomitant]
     Active Substance: ACETAMINOPHEN\CODEINE PHOSPHATE
     Indication: Analgesic therapy
     Dates: start: 20220601

REACTIONS (5)
  - Palpitations [Recovering/Resolving]
  - Heart rate increased [Recovering/Resolving]
  - Headache [Recovering/Resolving]
  - Pyrexia [Recovering/Resolving]
  - Pain [Recovering/Resolving]

NARRATIVE: CASE EVENT DATE: 20220612
